FAERS Safety Report 9917934 (Version 2)
Quarter: 2014Q2

REPORT INFORMATION
  Report Type: Report from Study
  Country: CA (occurrence: CA)
  Receive Date: 20140222
  Receipt Date: 20140430
  Transmission Date: 20141212
  Serious: Yes (Hospitalization, Other)
  Sender: FDA-Public Use
  Company Number: CA-ROCHE-1353262

PATIENT
  Age: 84 Year
  Sex: Female
  Weight: 65.83 kg

DRUGS (5)
  1. RANIBIZUMAB [Suspect]
     Indication: PRODUCT USED FOR UNKNOWN INDICATION
     Route: 050
     Dates: start: 20130304
  2. RANIBIZUMAB [Suspect]
     Route: 050
     Dates: start: 20130306
  3. RANIBIZUMAB [Suspect]
     Route: 050
     Dates: start: 20131128
  4. RANIBIZUMAB [Suspect]
     Route: 050
     Dates: start: 20140117, end: 20140117
  5. RANIBIZUMAB [Suspect]
     Route: 050
     Dates: start: 20140310

REACTIONS (6)
  - Lower limb fracture [Not Recovered/Not Resolved]
  - Fall [Unknown]
  - Joint dislocation [Recovering/Resolving]
  - Osteosynthesis [Unknown]
  - Osteomyelitis [Unknown]
  - Wound infection [Unknown]
